FAERS Safety Report 24704715 (Version 1)
Quarter: 2024Q4

REPORT INFORMATION
  Report Type: Spontaneous
  Country: US (occurrence: US)
  Receive Date: 20241206
  Receipt Date: 20241206
  Transmission Date: 20250115
  Serious: No
  Sender: Steriscience PTE
  Company Number: None

PATIENT
  Age: 23 Year
  Sex: Male

DRUGS (5)
  1. MEROPENEM [Suspect]
     Active Substance: MEROPENEM
     Indication: Mycobacterium avium complex infection
     Dosage: UNK
     Route: 065
  2. VABORBACTAM [Suspect]
     Active Substance: VABORBACTAM
     Indication: Mycobacterium avium complex infection
     Dosage: UNK
     Route: 065
  3. ERAVACYCLINE [Suspect]
     Active Substance: ERAVACYCLINE
     Indication: Mycobacterium avium complex infection
     Dosage: UNK
     Route: 065
  4. CLOFAZIMINE [Concomitant]
     Active Substance: CLOFAZIMINE
     Indication: Mycobacterium avium complex infection
     Dosage: UNK
     Route: 065
  5. AMIKACIN [Concomitant]
     Active Substance: AMIKACIN
     Indication: Mycobacterium avium complex infection
     Dosage: UNK
     Route: 042

REACTIONS (1)
  - Diarrhoea [Unknown]
